FAERS Safety Report 12844751 (Version 2)
Quarter: 2016Q4

REPORT INFORMATION
  Report Type: Spontaneous
  Country: US (occurrence: US)
  Receive Date: 20161013
  Receipt Date: 20161202
  Transmission Date: 20170207
  Serious: No
  Sender: FDA-Public Use
  Company Number: US-PFIZER INC-2016478281

PATIENT
  Age: 59 Year
  Sex: Female
  Weight: 73.3 kg

DRUGS (2)
  1. METHADONE [Concomitant]
     Active Substance: METHADONE HYDROCHLORIDE
     Indication: PAIN
     Dosage: 40 MG, DAILY (10MG 1.5 PILL IN MORNING, 1 PILL AT MIDDAY AND 1.5 AT NIGHT)
     Dates: start: 2016
  2. IBRANCE [Suspect]
     Active Substance: PALBOCICLIB
     Indication: BONE CANCER
     Dosage: 125 MG, CYCLIC (WITH FOOD DAILY FOR 21 DAYS)
     Route: 048
     Dates: start: 201608

REACTIONS (2)
  - Product use issue [Unknown]
  - Nausea [Recovered/Resolved]

NARRATIVE: CASE EVENT DATE: 2016
